FAERS Safety Report 9448610 (Version 1)
Quarter: 2013Q3

REPORT INFORMATION
  Report Type: Spontaneous
  Country: US (occurrence: US)
  Receive Date: 20130808
  Receipt Date: 20130808
  Transmission Date: 20140515
  Serious: Yes (Hospitalization)
  Sender: FDA-Public Use
  Company Number: US-ASTRAZENECA-2013SE58979

PATIENT
  Age: 51 Year
  Sex: Male
  Weight: 81.6 kg

DRUGS (2)
  1. NEXIUM [Suspect]
     Indication: GASTROOESOPHAGEAL REFLUX DISEASE
     Route: 048
  2. NEXIUM [Suspect]
     Indication: GASTRIC DISORDER
     Route: 048

REACTIONS (7)
  - Arthropathy [Unknown]
  - Musculoskeletal discomfort [Unknown]
  - Gastrooesophageal reflux disease [Unknown]
  - Therapeutic response unexpected [Unknown]
  - Malaise [Unknown]
  - Hypophagia [Unknown]
  - Intentional drug misuse [Unknown]
